FAERS Safety Report 15696569 (Version 2)
Quarter: 2022Q3

REPORT INFORMATION
  Report Type: Spontaneous
  Country: TR (occurrence: TR)
  Receive Date: 20181206
  Receipt Date: 20220810
  Transmission Date: 20221026
  Serious: Yes (Hospitalization, Other)
  Sender: FDA-Public Use
  Company Number: TR-ENDO PHARMACEUTICALS INC-2018-043230

PATIENT
  Age: 12 Year
  Sex: Male

DRUGS (4)
  1. QUETIAPINE FUMARATE [Suspect]
     Active Substance: QUETIAPINE FUMARATE
     Indication: Attention deficit hyperactivity disorder
     Dosage: 25 MG, DAILY (PER FULL TEXT ARTICLE)
     Route: 065
  2. QUETIAPINE FUMARATE [Suspect]
     Active Substance: QUETIAPINE FUMARATE
     Dosage: 50 MG, DAILY (EVERY EVENING) (PER FULL TEXT ARTICLE)
     Route: 065
  3. QUETIAPINE FUMARATE [Suspect]
     Active Substance: QUETIAPINE FUMARATE
     Dosage: 12.5 MG, DAILY (PER CONFERENCE ABSTRACT)
     Route: 065
  4. QUETIAPINE FUMARATE [Suspect]
     Active Substance: QUETIAPINE FUMARATE
     Dosage: 25 MG, DAILY (PER CONFERENCE ABSTRACT)
     Route: 065

REACTIONS (2)
  - Autoimmune haemolytic anaemia [Recovered/Resolved]
  - Off label use [Unknown]
